FAERS Safety Report 11747860 (Version 1)
Quarter: 2015Q4

REPORT INFORMATION
  Report Type: Spontaneous
  Country: US (occurrence: US)
  Receive Date: 20151117
  Receipt Date: 20151117
  Transmission Date: 20160304
  Serious: No
  Sender: FDA-Public Use
  Company Number: US-NOVOPROD-456430

PATIENT
  Age: 61 Year
  Sex: Male

DRUGS (2)
  1. NOVOLOG MIX 70/30 [Suspect]
     Active Substance: INSULIN ASPART
     Dosage: UNK
     Route: 058
     Dates: start: 2005
  2. NOVOLOG MIX 70/30 [Suspect]
     Active Substance: INSULIN ASPART
     Indication: TYPE 2 DIABETES MELLITUS
     Dosage: UNK
     Route: 058
     Dates: start: 2005

REACTIONS (7)
  - Drug ineffective [Recovering/Resolving]
  - Joint crepitation [Recovering/Resolving]
  - Swollen tongue [Recovering/Resolving]
  - Product quality issue [Recovering/Resolving]
  - Arthralgia [Recovering/Resolving]
  - Abdominal pain lower [Recovering/Resolving]
  - Blood glucose increased [Recovering/Resolving]
